FAERS Safety Report 23570379 (Version 2)
Quarter: 2024Q1

REPORT INFORMATION
  Report Type: Spontaneous
  Country: US (occurrence: US)
  Receive Date: 20240227
  Receipt Date: 20240326
  Transmission Date: 20240410
  Serious: No
  Sender: FDA-Public Use
  Company Number: US-BRISTOL-MYERS SQUIBB COMPANY-2024-031087

PATIENT
  Age: 86 Year
  Sex: Male
  Weight: 89.81 kg

DRUGS (1)
  1. POMALYST [Suspect]
     Active Substance: POMALIDOMIDE
     Indication: Plasma cell myeloma
     Dosage: 2WKSON,1WKOFF
     Route: 048

REACTIONS (6)
  - Fatigue [Recovered/Resolved]
  - Dizziness [Recovered/Resolved]
  - Sluggishness [Not Recovered/Not Resolved]
  - Heart rate decreased [Recovered/Resolved]
  - Off label use [Unknown]
  - Intentional dose omission [Unknown]
